FAERS Safety Report 8598012-X (Version None)
Quarter: 2012Q3

REPORT INFORMATION
  Report Type: 
  Country: None (occurrence: None)
  Receive Date: 20120816
  Receipt Date: 20120807
  Transmission Date: 20120928
  Serious: Yes (Other)
  Sender: FDA-Public Use
  Company Number: IN-BRISTOL-MYERS SQUIBB COMPANY-16834921

PATIENT
  Sex: Female

DRUGS (4)
  1. ONGLYZA [Suspect]
     Indication: DIABETES MELLITUS
     Dates: start: 20120530, end: 20120608
  2. GLIMEPIRIDE [Concomitant]
  3. METFORMIN HYDROCHLORIDE [Concomitant]
     Dosage: 1 FD:850MG
  4. AMLODIPINE [Concomitant]

REACTIONS (5)
  - ABDOMINAL PAIN [None]
  - BLOOD GLUCOSE INCREASED [None]
  - ABDOMINAL DISCOMFORT [None]
  - FLATULENCE [None]
  - DIARRHOEA [None]
